FAERS Safety Report 9231483 (Version 1)
Quarter: 2013Q2

REPORT INFORMATION
  Report Type: Spontaneous
  Country: GB (occurrence: GB)
  Receive Date: 20130415
  Receipt Date: 20130415
  Transmission Date: 20140414
  Serious: Yes (Other)
  Sender: FDA-Public Use
  Company Number: GB-BRISTOL-MYERS SQUIBB COMPANY-18790535

PATIENT
  Age: 82 Year
  Sex: Female

DRUGS (2)
  1. LYSODREN TABS 500 MG [Suspect]
     Indication: ADRENOCORTICAL CARCINOMA
     Dosage: TWO+HALF TABS DAILY
     Dates: start: 20121221
  2. ASPIRIN [Concomitant]

REACTIONS (4)
  - Condition aggravated [Unknown]
  - Intentional drug misuse [Unknown]
  - Wrong technique in drug usage process [None]
  - General physical health deterioration [None]
